FAERS Safety Report 5274333-3 (Version None)
Quarter: 2007Q1

REPORT INFORMATION
  Report Type: 
  Country: None (occurrence: None)
  Receive Date: 20070323
  Receipt Date: 20070309
  Transmission Date: 20070707
  Serious: Yes (Hospitalization)
  Sender: FDA-Public Use
  Company Number: JP-PFIZER INC-2007022610

PATIENT
  Age: 65 Year
  Sex: Female

DRUGS (4)
  1. MIGLITOL TABLET [Suspect]
     Indication: DIABETES MELLITUS
     Route: 048
  2. MELBIN [Concomitant]
     Route: 048
     Dates: start: 20060911
  3. LENDORMIN [Concomitant]
     Route: 065
  4. TALION [Concomitant]
     Route: 048

REACTIONS (4)
  - BLOOD BILIRUBIN INCREASED [None]
  - FLATULENCE [None]
  - HEPATIC ENZYME INCREASED [None]
  - JAUNDICE [None]
